FAERS Safety Report 17263513 (Version 2)
Quarter: 2020Q1

REPORT INFORMATION
  Report Type: Spontaneous
  Country: DE (occurrence: DE)
  Receive Date: 20200113
  Receipt Date: 20200213
  Transmission Date: 20200409
  Serious: Yes (Other)
  Sender: FDA-Public Use
  Company Number: DE-MYLANLABS-2020M1003542

PATIENT
  Sex: Female

DRUGS (10)
  1. EVEROLIMUS. [Suspect]
     Active Substance: EVEROLIMUS
     Indication: PRODUCT USED FOR UNKNOWN INDICATION
     Dosage: 0.15 MG/KG, QD
     Route: 065
  2. EVEROLIMUS. [Interacting]
     Active Substance: EVEROLIMUS
     Dosage: 0.13 MG/KG, QD
     Route: 065
  3. CLOBAZAM. [Concomitant]
     Active Substance: CLOBAZAM
     Indication: TUBEROUS SCLEROSIS COMPLEX
     Dosage: 2.5 MG, BID
     Route: 065
  4. LACOSAMIDE. [Concomitant]
     Active Substance: LACOSAMIDE
     Indication: TUBEROUS SCLEROSIS COMPLEX
     Dosage: UNK
     Route: 065
  5. CANNABIDIOL [Interacting]
     Active Substance: CANNABIDIOL
     Indication: TUBEROUS SCLEROSIS COMPLEX
     Dosage: 200 MG, QD (9.3 MG/KG/DAY)
     Route: 065
  6. EVEROLIMUS. [Interacting]
     Active Substance: EVEROLIMUS
     Dosage: 0.3 MG/KG, QD
     Route: 065
  7. PROPRANOLOL [Concomitant]
     Active Substance: PROPRANOLOL HYDROCHLORIDE
     Indication: TUBEROUS SCLEROSIS COMPLEX
     Dosage: UNK
     Route: 065
  8. EVEROLIMUS. [Interacting]
     Active Substance: EVEROLIMUS
     Dosage: 0.6 MG/KG, QD
     Route: 065
  9. LAMOTRIGINE. [Concomitant]
     Active Substance: LAMOTRIGINE
     Indication: TUBEROUS SCLEROSIS COMPLEX
     Dosage: UNK
     Route: 065
  10. CANNABIDIOL [Interacting]
     Active Substance: CANNABIDIOL
     Dosage: 500 MG, QD (20.4 MG/KG/DAY)
     Route: 065

REACTIONS (4)
  - Epilepsy [Unknown]
  - Drug ineffective [Unknown]
  - Drug level increased [Unknown]
  - Drug interaction [Unknown]
